FAERS Safety Report 6221506-9 (Version None)
Quarter: 2009Q2

REPORT INFORMATION
  Report Type: 
  Country: None (occurrence: None)
  Receive Date: 20090610
  Receipt Date: 20090601
  Transmission Date: 20091009
  Serious: Yes (Other)
  Sender: FDA-Public Use
  Company Number: PHEH2008US05593

PATIENT

DRUGS (1)
  1. ZOMETA [Suspect]
     Indication: MULTIPLE MYELOMA
     Dosage: MONTHLY

REACTIONS (9)
  - ANHEDONIA [None]
  - ANXIETY [None]
  - BONE DISORDER [None]
  - INJURY [None]
  - OSTEONECROSIS [None]
  - PAIN [None]
  - PAIN IN JAW [None]
  - SURGERY [None]
  - TOOTH EXTRACTION [None]
